FAERS Safety Report 14490440 (Version 1)
Quarter: 2018Q1

REPORT INFORMATION
  Report Type: Report from Study
  Country: IS (occurrence: IS)
  Receive Date: 20180206
  Receipt Date: 20180206
  Transmission Date: 20180509
  Serious: Yes (Death, Other)
  Sender: FDA-Public Use
  Company Number: IS-BRISTOL-MYERS SQUIBB COMPANY-BMS-2018-010873

PATIENT
  Age: 57 Year
  Sex: Male

DRUGS (1)
  1. WARFARIN SODIUM. [Suspect]
     Active Substance: WARFARIN SODIUM
     Indication: PRODUCT USED FOR UNKNOWN INDICATION
     Route: 065

REACTIONS (4)
  - Abdominal compartment syndrome [Unknown]
  - Gastrointestinal haemorrhage [Fatal]
  - Incarcerated hernia [Unknown]
  - Intestinal ischaemia [Unknown]
